FAERS Safety Report 7392436-4 (Version None)
Quarter: 2011Q1

REPORT INFORMATION
  Report Type: 
  Country: None (occurrence: None)
  Receive Date: 20110330
  Receipt Date: 20110330
  Transmission Date: 20110831
  Serious: Yes (Other)
  Sender: FDA-Public Use
  Company Number: None

PATIENT
  Age: 39 Year
  Sex: Female
  Weight: 61.2356 kg

DRUGS (1)
  1. MACROBID [Suspect]
     Indication: URINARY TRACT INFECTION
     Dosage: 100 MG 2/DAY PO
     Route: 048
     Dates: start: 20110322, end: 20110325

REACTIONS (7)
  - FEAR [None]
  - HEADACHE [None]
  - ABDOMINAL PAIN UPPER [None]
  - DYSPEPSIA [None]
  - CHEST PAIN [None]
  - DECREASED APPETITE [None]
  - NAUSEA [None]
